FAERS Safety Report 17695569 (Version 1)
Quarter: 2020Q2

REPORT INFORMATION
  Report Type: Spontaneous
  Country: US (occurrence: US)
  Receive Date: 20200422
  Receipt Date: 20200422
  Transmission Date: 20200714
  Serious: Yes (Other)
  Sender: FDA-Public Use
  Company Number: US-NAPPMUNDI-USA-2020-0151432

PATIENT
  Sex: Male

DRUGS (3)
  1. OXYCONTIN [Suspect]
     Active Substance: OXYCODONE HYDROCHLORIDE
     Dosage: UNK, TID
     Route: 048
     Dates: end: 20200325
  2. OXYCONTIN [Suspect]
     Active Substance: OXYCODONE HYDROCHLORIDE
     Indication: BACK PAIN
     Dosage: UNK UNK, DAILY
     Route: 048
  3. OXYCONTIN [Suspect]
     Active Substance: OXYCODONE HYDROCHLORIDE
     Indication: ARTHRALGIA
     Dosage: UNK, BID
     Route: 048

REACTIONS (7)
  - Hallucination [Unknown]
  - Drug dose titration not performed [Unknown]
  - Off label use [Recovered/Resolved]
  - Drug dependence [Not Recovered/Not Resolved]
  - Pain [Unknown]
  - Drug tolerance increased [Unknown]
  - Mental impairment [Unknown]
